FAERS Safety Report 14512596 (Version 1)
Quarter: 2018Q1

REPORT INFORMATION
  Report Type: Spontaneous
  Country: US (occurrence: US)
  Receive Date: 20180209
  Receipt Date: 20180209
  Transmission Date: 20180509
  Serious: No
  Sender: FDA-Public Use
  Company Number: US-ALLERGAN-1713231US

PATIENT
  Sex: Female

DRUGS (2)
  1. RESTASIS [Suspect]
     Active Substance: CYCLOSPORINE
     Dosage: UNK
  2. RESTASIS [Suspect]
     Active Substance: CYCLOSPORINE
     Indication: DRY EYE
     Dosage: UNK
     Route: 047

REACTIONS (5)
  - Drug dose omission [Recovered/Resolved]
  - Oral discomfort [Recovered/Resolved]
  - Hypoaesthesia oral [Recovered/Resolved]
  - Tongue discomfort [Recovered/Resolved]
  - Dysphagia [Recovered/Resolved]
